FAERS Safety Report 25963921 (Version 3)
Quarter: 2025Q4

REPORT INFORMATION
  Report Type: Spontaneous
  Country: US (occurrence: US)
  Receive Date: 20251027
  Receipt Date: 20251210
  Transmission Date: 20260118
  Serious: Yes (Hospitalization, Other)
  Sender: LUPIN
  Company Number: US-LUPIN PHARMACEUTICALS INC.-2025-09647

PATIENT

DRUGS (3)
  1. TOLVAPTAN [Interacting]
     Active Substance: TOLVAPTAN
     Indication: Congenital cystic kidney disease
     Dosage: UNK, QD
  2. TOLVAPTAN [Interacting]
     Active Substance: TOLVAPTAN
     Indication: Congenital cystic kidney disease
     Dosage: UNK, QD
  3. DILANTIN [Interacting]
     Active Substance: PHENYTOIN
     Indication: Product used for unknown indication
     Dosage: UNK
     Route: 065

REACTIONS (7)
  - Lower limb fracture [Unknown]
  - Loss of control of legs [Unknown]
  - Oedema peripheral [Unknown]
  - Product dose omission issue [Unknown]
  - Drug interaction [Unknown]
  - Therapeutic product effect decreased [Unknown]
  - Product substitution issue [Unknown]
